FAERS Safety Report 9143748 (Version 1)
Quarter: 2013Q1

REPORT INFORMATION
  Report Type: Other
  Country: US (occurrence: US)
  Receive Date: 20130306
  Receipt Date: 20130306
  Transmission Date: 20140127
  Serious: Yes (Other)
  Sender: FDA-Public Use
  Company Number: US-BRISTOL-MYERS SQUIBB COMPANY-17447988

PATIENT
  Age: 47 Year
  Sex: Female

DRUGS (2)
  1. TRIAMCINOLONE ACE INJ [Suspect]
     Indication: INTERVERTEBRAL DISC PROTRUSION
     Dosage: INJECTION DOSES: 2
     Route: 008
  2. RITONAVIR [Interacting]
     Indication: HIV INFECTION
     Route: 008

REACTIONS (2)
  - Hypercorticoidism [Unknown]
  - Drug interaction [Unknown]
